FAERS Safety Report 18060953 (Version 12)
Quarter: 2022Q1

REPORT INFORMATION
  Report Type: Spontaneous
  Country: IN (occurrence: IN)
  Receive Date: 20200723
  Receipt Date: 20220210
  Transmission Date: 20220423
  Serious: Yes (Other)
  Sender: FDA-Public Use
  Company Number: IN-PFIZER INC-2019525226

PATIENT
  Age: 53 Year
  Sex: Female
  Weight: 106.71 kg

DRUGS (7)
  1. PALBOCICLIB [Suspect]
     Active Substance: PALBOCICLIB
     Indication: Breast cancer metastatic
     Dosage: 125 MG, CYCLIC (3 WEEK ON, 1 WEEK OFF)
     Route: 048
     Dates: start: 20190812
  2. PALBOCICLIB [Suspect]
     Active Substance: PALBOCICLIB
     Dosage: 125 MG, CYCLIC (3 WEEKS ON, 1 WEEK OFF)
     Route: 048
     Dates: start: 20210710
  3. CALCIUM [Concomitant]
     Active Substance: CALCIUM
     Dosage: UNK (EVERY 6 MONTHS)
  4. LETROZOLE [Concomitant]
     Active Substance: LETROZOLE
     Dosage: 2.5 MG, 1X/DAY (FOR 1 MONTH)
     Dates: start: 202001
  5. LETROZOLE [Concomitant]
     Active Substance: LETROZOLE
     Dosage: 2.5 MG, 1X/DAY (FOR 1 MONTH)
     Dates: start: 20210710
  6. TAMOXIFEN [Concomitant]
     Active Substance: TAMOXIFEN
     Dosage: UNK
     Dates: start: 201908
  7. ZA [Concomitant]
     Dosage: UNK
     Dates: end: 20200224

REACTIONS (17)
  - Hypothyroidism [Unknown]
  - White blood cell count decreased [Unknown]
  - Nasopharyngitis [Unknown]
  - Cough [Unknown]
  - Urinary tract infection [Unknown]
  - Arthralgia [Unknown]
  - Neutrophil count decreased [Unknown]
  - Blood pressure increased [Unknown]
  - Insomnia [Unknown]
  - Pyrexia [Unknown]
  - Heart rate increased [Unknown]
  - Myalgia [Unknown]
  - Asthenia [Unknown]
  - Full blood count abnormal [Unknown]
  - Amnesia [Unknown]
  - Inappropriate schedule of product administration [Unknown]
  - Product dose omission issue [Unknown]

NARRATIVE: CASE EVENT DATE: 20200601
